FAERS Safety Report 5285161-7 (Version None)
Quarter: 2007Q2

REPORT INFORMATION
  Report Type: 
  Country: None (occurrence: None)
  Receive Date: 20070403
  Receipt Date: 20070323
  Transmission Date: 20071010
  Serious: Yes (Death)
  Sender: FDA-Public Use
  Company Number: GR-PFIZER INC-2007009533

PATIENT
  Sex: Female
  Weight: 68 kg

DRUGS (8)
  1. SU-011,248 [Suspect]
     Indication: METASTATIC RENAL CELL CARCINOMA
     Route: 048
     Dates: start: 20060809, end: 20061227
  2. FENTANYL [Concomitant]
     Route: 062
  3. CODEINE [Concomitant]
     Route: 054
     Dates: start: 20061130
  4. OMEPRAZOLE [Concomitant]
     Route: 048
     Dates: start: 20070112
  5. NIMESULIDE [Concomitant]
     Route: 048
     Dates: start: 20070117
  6. LACTULOSE [Concomitant]
     Route: 048
     Dates: start: 20070117
  7. METOCLOPRAMIDE HYDROCHLORIDE [Concomitant]
     Route: 048
     Dates: start: 20061228, end: 20070112
  8. ONDANSETRON HCL [Concomitant]
     Route: 048
     Dates: start: 20070113, end: 20070114

REACTIONS (1)
  - DEATH [None]
